FAERS Safety Report 4868036-4 (Version None)
Quarter: 2005Q4

REPORT INFORMATION
  Report Type: 
  Country: None (occurrence: None)
  Receive Date: 20051229
  Receipt Date: 20051222
  Transmission Date: 20060501
  Serious: Yes (Death, Hospitalization)
  Sender: FDA-Public Use
  Company Number: US-GILEAD-2005-0009045

PATIENT
  Age: 68 Year
  Sex: Female

DRUGS (1)
  1. HEPSERA [Suspect]
     Indication: HEPATITIS B
     Dates: start: 20040101

REACTIONS (7)
  - COUGH [None]
  - FATIGUE [None]
  - HBV DNA INCREASED [None]
  - HEPATIC ENZYME INCREASED [None]
  - HYPOTENSION [None]
  - LIVER DISORDER [None]
  - PULMONARY OEDEMA [None]
